FAERS Safety Report 9125624 (Version 1)
Quarter: 2013Q1

REPORT INFORMATION
  Report Type: Spontaneous
  Country: CO (occurrence: CO)
  Receive Date: 20130227
  Receipt Date: 20130227
  Transmission Date: 20140127
  Serious: Yes (Other)
  Sender: FDA-Public Use
  Company Number: CO-AMGEN-COLSP2013013723

PATIENT
  Age: 74 Year
  Sex: Male

DRUGS (8)
  1. ENBREL [Suspect]
     Indication: PSORIASIS
     Dosage: 50 MG, WEEKLY
     Route: 058
     Dates: start: 2012
  2. BETAMETHASONE [Suspect]
     Indication: URTICARIA
     Dosage: UNK
     Route: 061
     Dates: start: 2012
  3. ENALAPRIL [Concomitant]
     Indication: HYPERTENSION
     Dosage: 20 MG, 1X/DAY
     Route: 048
     Dates: start: 2008
  4. LORATADINE [Concomitant]
     Indication: PSORIASIS
     Dosage: UNK
     Route: 048
     Dates: start: 2008
  5. LORATADINE [Concomitant]
     Indication: INFLUENZA
  6. LOVASTATIN [Concomitant]
     Dosage: UNK
     Route: 048
     Dates: start: 2008
  7. THIAMINE [Concomitant]
     Dosage: UNK
     Route: 048
     Dates: start: 2008
  8. ACETAMINOPHEN [Concomitant]
     Indication: PAIN
     Dosage: UNK UNK, AS NECESSARY
     Route: 065

REACTIONS (4)
  - Cataract [Recovered/Resolved]
  - Urticaria [Not Recovered/Not Resolved]
  - Skin sensitisation [Not Recovered/Not Resolved]
  - Skin haemorrhage [Not Recovered/Not Resolved]
